FAERS Safety Report 10179418 (Version 1)
Quarter: 2014Q2

REPORT INFORMATION
  Report Type: Spontaneous
  Country: US (occurrence: None)
  Receive Date: 20140416
  Receipt Date: 20140416
  Transmission Date: 20141212
  Serious: Yes (Other)
  Sender: FDA-Public Use
  Company Number: 163-POMAL-13104673

PATIENT
  Age: 59 Year
  Sex: Female

DRUGS (7)
  1. POMALYST [Suspect]
     Indication: PLASMA CELL MYELOMA
     Dosage: 4 MG, 21 IN 21 D, PO?
     Route: 048
     Dates: start: 20130925
  2. DEXAMETHASONE (DEXAMETHASONE) (UNKNOWN) [Concomitant]
  3. ACYCLOVIR (ACICLOVIR) (CAPSULES) [Concomitant]
  4. PRILOSEC (OMEPRAZOLE) (CAPSULES) [Concomitant]
  5. TYLENOL PM EXTRA STRENGTH (DOZOL) (UNKNOWN) [Concomitant]
  6. HYDROCODONE (HYDROCODONE) (UNKNOWN)? [Concomitant]
  7. AMBIEN (ZOLPIDEM TARTRATE) (UNKNOWN) [Concomitant]

REACTIONS (3)
  - Neutrophil count decreased [None]
  - Sinusitis [None]
  - Ear infection [None]
